FAERS Safety Report 14565170 (Version 2)
Quarter: 2018Q1

REPORT INFORMATION
  Report Type: Report from Study
  Country: DE (occurrence: DE)
  Receive Date: 20180223
  Receipt Date: 20180227
  Transmission Date: 20180509
  Serious: Yes (Hospitalization)
  Sender: FDA-Public Use
  Company Number: DE-ROCHE-2071781

PATIENT
  Age: 55 Year
  Sex: Female
  Weight: 74 kg

DRUGS (14)
  1. DOXYCYCLIN [Concomitant]
     Active Substance: DOXYCYCLINE
     Indication: PHOTOSENSITIVITY REACTION
  2. OBINUTUZUMAB. [Suspect]
     Active Substance: OBINUTUZUMAB
     Indication: B-CELL LYMPHOMA
     Dosage: SUBSEQUENT DOSE ON: 12/DEC/2017
     Route: 041
     Dates: start: 20161221, end: 20171214
  3. CANDESARTAN. [Concomitant]
     Active Substance: CANDESARTAN
     Indication: HYPERTENSION
  4. PANTOZOL [Concomitant]
     Active Substance: PANTOPRAZOLE SODIUM
  5. IBRUTINIB [Suspect]
     Active Substance: IBRUTINIB
     Indication: B-CELL LYMPHOMA
     Dosage: SUBSEQUENT DOSE ON: 24/JAN/2017?ON 25/JAN/2018: IBRUTINIB WAS TEMPORARY STOPPED, DOSE UNCHANGED
     Route: 048
     Dates: start: 20161221, end: 20180124
  6. FENISTIL (GERMANY) [Concomitant]
     Indication: PREMEDICATION
  7. MORPHIUM [Concomitant]
     Active Substance: MORPHINE
     Indication: SYNCOPE
  8. TRANXILIUM [Concomitant]
     Active Substance: CLORAZEPATE DIPOTASSIUM
     Indication: ANXIETY
  9. METRONIDAZOL [Concomitant]
     Active Substance: METRONIDAZOLE
     Indication: URTICARIA
  10. DIENOVEL [Concomitant]
     Active Substance: DIENOGEST\ETHINYL ESTRADIOL
     Indication: CHEMICAL CONTRACEPTION
  11. TRAVATAN [Concomitant]
     Active Substance: TRAVOPROST
     Indication: GLAUCOMA
  12. PREDNISOLON [Concomitant]
     Active Substance: PREDNISOLONE
     Indication: PREMEDICATION
  13. SALBUTAMOL [Concomitant]
     Active Substance: ALBUTEROL
     Indication: CHRONIC SINUSITIS
  14. RANITIC [Concomitant]
     Active Substance: RANITIDINE HYDROCHLORIDE
     Indication: PREMEDICATION

REACTIONS (1)
  - Pyrexia [Recovered/Resolved]

NARRATIVE: CASE EVENT DATE: 20180125
